FAERS Safety Report 8001138-2 (Version None)
Quarter: 2011Q4

REPORT INFORMATION
  Report Type: 
  Country: None (occurrence: None)
  Receive Date: 20111222
  Receipt Date: 20111220
  Transmission Date: 20120403
  Serious: Yes (Other)
  Sender: FDA-Public Use
  Company Number: JP-EISAI INC-E2020-10136-SPO-JP

PATIENT
  Age: 78 Year
  Sex: Male

DRUGS (5)
  1. JU-KAMA [Concomitant]
     Route: 048
  2. ARICEPT [Suspect]
     Route: 048
  3. ARICEPT [Suspect]
     Indication: DEMENTIA ALZHEIMER'S TYPE
     Route: 048
  4. CORTRIL [Concomitant]
     Route: 048
  5. LANSOPRAZOLE [Concomitant]
     Route: 048

REACTIONS (2)
  - DELIRIUM [None]
  - TREMOR [None]
